FAERS Safety Report 4492088-7 (Version None)
Quarter: 2004Q4

REPORT INFORMATION
  Report Type: 
  Country: None (occurrence: None)
  Receive Date: 20041101
  Receipt Date: 20040916
  Transmission Date: 20050328
  Serious: Yes (Life-Threatening, Disabling)
  Sender: FDA-Public Use
  Company Number: 2004067358

PATIENT
  Age: 47 Year
  Sex: Female
  Weight: 72.5755 kg

DRUGS (6)
  1. ZOLOFT [Suspect]
     Indication: DEPRESSION
     Dosage: 100 MG (1 IN1 D)
     Dates: start: 19970101
  2. ESCITALOPRAM (ESCITALOPRAM) [Suspect]
     Indication: DEPRESSION
     Dosage: 10 MG (10 MG, 1 IN 1 D)
     Dates: start: 20040301
  3. VALPROATE SODIUM [Suspect]
     Indication: ILL-DEFINED DISORDER
  4. OLANZAPINE [Suspect]
     Indication: ILL-DEFINED DISORDER
  5. TOPIRAMATE [Suspect]
     Indication: ILL-DEFINED DISORDER
     Dosage: 50 MG
  6. QUETIAPINE FUMARATE (QUETIAPINE FUMARATE) [Suspect]
     Indication: ILL-DEFINED DISORDER
     Dosage: 50 MG

REACTIONS (13)
  - AGITATION [None]
  - BIPOLAR II DISORDER [None]
  - DEPRESSION [None]
  - FEELINGS OF WORTHLESSNESS [None]
  - IRRITABILITY [None]
  - PANIC ATTACK [None]
  - PARANOIA [None]
  - PSYCHOTIC DISORDER [None]
  - SLEEP DISORDER [None]
  - SPEECH DISORDER [None]
  - STRESS SYMPTOMS [None]
  - SUICIDAL IDEATION [None]
  - WEIGHT INCREASED [None]
